FAERS Safety Report 6054458-5 (Version None)
Quarter: 2009Q1

REPORT INFORMATION
  Report Type: 
  Country: None (occurrence: None)
  Receive Date: 20090123
  Receipt Date: 20090123
  Transmission Date: 20090719
  Serious: Yes (Other)
  Sender: FDA-Public Use
  Company Number: None

PATIENT
  Age: 4 Year
  Sex: Male
  Weight: 18 kg

DRUGS (1)
  1. SINGULAIR [Suspect]

REACTIONS (5)
  - ABNORMAL BEHAVIOUR [None]
  - AFFECTIVE DISORDER [None]
  - ANXIETY [None]
  - DEPRESSION [None]
  - SLEEP TERROR [None]
